FAERS Safety Report 8553771-7 (Version None)
Quarter: 2012Q3

REPORT INFORMATION
  Report Type: 
  Country: None (occurrence: None)
  Receive Date: 20120731
  Receipt Date: 20120723
  Transmission Date: 20120928
  Serious: Yes (Hospitalization)
  Sender: FDA-Public Use
  Company Number: JP-GLAXOSMITHKLINE-B0818500A

PATIENT
  Age: 29 Year
  Sex: Female

DRUGS (5)
  1. LAMICTAL [Suspect]
     Dosage: 400MG PER DAY
     Route: 048
  2. DEPAKENE [Concomitant]
     Route: 048
  3. RIVOTRIL [Concomitant]
     Route: 048
     Dates: start: 20120201
  4. LAMICTAL [Suspect]
     Indication: EPILEPSY
     Route: 048
     Dates: start: 20120201
  5. PHENYTOIN SODIUM CAP [Concomitant]
     Route: 065

REACTIONS (5)
  - DIZZINESS [None]
  - DIPLOPIA [None]
  - EPILEPSY [None]
  - AKINESIA [None]
  - DRUG LEVEL INCREASED [None]
